FAERS Safety Report 19722479 (Version 2)
Quarter: 2021Q3

REPORT INFORMATION
  Report Type: Report from Study
  Country: FR (occurrence: FR)
  Receive Date: 20210819
  Receipt Date: 20210824
  Transmission Date: 20211014
  Serious: Yes (Hospitalization)
  Sender: FDA-Public Use
  Company Number: FR-MYLANLABS-2021M1052962

PATIENT
  Age: 70 Year
  Sex: Male

DRUGS (21)
  1. ETANERCEPT [Suspect]
     Active Substance: ETANERCEPT
     Indication: PSORIASIS
     Dosage: 100 MILLIGRAM, QW (50 MG, 2X/WEEK)
     Route: 058
     Dates: start: 20160509, end: 201608
  2. ETANERCEPT [Suspect]
     Active Substance: ETANERCEPT
     Dosage: 50 MILLIGRAM, QW
     Route: 058
     Dates: start: 201906, end: 20190619
  3. METHOTREXATE. [Suspect]
     Active Substance: METHOTREXATE
     Indication: PSORIASIS
     Dosage: 20 MILLIGRAM, QW
     Route: 058
     Dates: start: 20210219, end: 20210219
  4. NERISONE [Concomitant]
     Active Substance: DIFLUCORTOLONE VALERATE
     Dosage: UNK
     Dates: start: 20170224
  5. PYOSTACINE [Concomitant]
     Active Substance: PRISTINAMYCIN
     Dosage: UNK
     Dates: start: 20180226, end: 20180306
  6. ENSTILAR [Concomitant]
     Active Substance: BETAMETHASONE DIPROPIONATE\CALCIPOTRIENE HYDRATE
     Dosage: UNK
  7. METHOTREXATE SODIUM. [Suspect]
     Active Substance: METHOTREXATE SODIUM
     Indication: PSORIASIS
     Dosage: 15 MILLIGRAM, QW
     Route: 048
     Dates: start: 20150122, end: 20151016
  8. CELESTENE                          /00008501/ [Concomitant]
     Active Substance: BETAMETHASONE
     Dosage: UNK
     Dates: start: 20180226, end: 20180306
  9. RAMIPRIL. [Concomitant]
     Active Substance: RAMIPRIL
     Dosage: UNK
  10. ETANERCEPT [Suspect]
     Active Substance: ETANERCEPT
     Dosage: 50 MILLIGRAM, QW
     Route: 058
     Dates: start: 201608, end: 20190301
  11. ETANERCEPT [Suspect]
     Active Substance: ETANERCEPT
     Dosage: 100 MILLIGRAM, QW (50 MG, 2X/WEEK)
     Route: 058
     Dates: start: 20190301, end: 201906
  12. FOLIC ACID. [Suspect]
     Active Substance: FOLIC ACID
     Indication: PRODUCT USED FOR UNKNOWN INDICATION
     Dosage: 5 MILLIGRAM, QW
     Route: 048
     Dates: start: 20151016, end: 20151016
  13. PLAVIHEX [Concomitant]
     Dosage: UNK
  14. ETANERCEPT [Suspect]
     Active Substance: ETANERCEPT
     Dosage: 100 MILLIGRAM, QW (50 MG, 2X/WEEK)
     Route: 058
     Dates: start: 20190619, end: 202007
  15. IKOREL [Concomitant]
     Active Substance: NICORANDIL
     Dosage: UNK
     Dates: start: 2005
  16. DERMOVAL                           /00008501/ [Concomitant]
     Active Substance: CLOBETASOL PROPIONATE
     Dosage: UNK
     Dates: start: 20150122, end: 20150422
  17. KARDEGIC [Concomitant]
     Active Substance: ASPIRIN DL-LYSINE
     Dosage: UNK
     Dates: start: 2005
  18. RENITEN                            /00574902/ [Concomitant]
     Dosage: UNK
     Dates: start: 2005, end: 2017
  19. ELISOR [Concomitant]
     Active Substance: PRAVASTATIN SODIUM
     Dosage: UNK
  20. METHOTREXATE SODIUM. [Suspect]
     Active Substance: METHOTREXATE SODIUM
     Dosage: 17.5 MILLIGRAM, QW
     Route: 048
     Dates: start: 20151016, end: 20160422
  21. METHOTREXATE SODIUM. [Suspect]
     Active Substance: METHOTREXATE SODIUM
     Dosage: 22.5 MILLIGRAM, QW
     Route: 048
     Dates: end: 20210219

REACTIONS (1)
  - Malignant melanoma [Recovered/Resolved]

NARRATIVE: CASE EVENT DATE: 20200619
